FAERS Safety Report 7429587-1 (Version None)
Quarter: 2011Q2

REPORT INFORMATION
  Report Type: 
  Country: None (occurrence: None)
  Receive Date: 20110421
  Receipt Date: 20110413
  Transmission Date: 20111010
  Serious: Yes (Life-Threatening, Hospitalization, Other)
  Sender: FDA-Public Use
  Company Number: B0691489A

PATIENT
  Age: 48 Year
  Sex: Male

DRUGS (5)
  1. FLUNITRAZEPAM [Suspect]
     Dosage: 92MG PER DAY
     Route: 065
  2. PAXIL [Suspect]
     Indication: BIPOLAR I DISORDER
     Dosage: 40MG SINGLE DOSE
     Route: 048
     Dates: start: 20030507
  3. LIMAS [Suspect]
     Dosage: 600MG SINGLE DOSE
     Route: 048
     Dates: start: 20080321
  4. CONSTAN [Suspect]
     Dosage: .8MG SINGLE DOSE
     Route: 048
     Dates: start: 19990830
  5. LUDIOMIL [Suspect]
     Dosage: 75MG SINGLE DOSE
     Route: 048
     Dates: start: 20000105

REACTIONS (16)
  - MOBILITY DECREASED [None]
  - GAMMA-GLUTAMYLTRANSFERASE INCREASED [None]
  - GAIT DISTURBANCE [None]
  - CONVULSION [None]
  - NYSTAGMUS [None]
  - BLOOD CREATINE PHOSPHOKINASE INCREASED [None]
  - ELECTROCARDIOGRAM QT PROLONGED [None]
  - ELECTROCARDIOGRAM QRS COMPLEX PROLONGED [None]
  - OVERDOSE [None]
  - ALTERED STATE OF CONSCIOUSNESS [None]
  - DRUG LEVEL INCREASED [None]
  - BLOOD CREATININE INCREASED [None]
  - SUICIDE ATTEMPT [None]
  - INTENTION TREMOR [None]
  - TOXICITY TO VARIOUS AGENTS [None]
  - ASPARTATE AMINOTRANSFERASE INCREASED [None]
